FAERS Safety Report 12067870 (Version 1)
Quarter: 2016Q1

REPORT INFORMATION
  Report Type: Spontaneous
  Country: US (occurrence: US)
  Receive Date: 20160211
  Receipt Date: 20160211
  Transmission Date: 20160526
  Serious: No
  Sender: FDA-Public Use
  Company Number: US-SMITH AND NEPHEW, INC-2015SMT00115

PATIENT
  Age: 82 Year
  Sex: Female
  Weight: 61.22 kg

DRUGS (2)
  1. REGRANEX [Suspect]
     Active Substance: BECAPLERMIN
     Indication: SKIN ULCER
     Dosage: UNK UNK, 1X/DAY
     Route: 061
     Dates: start: 20150422, end: 201505
  2. UNSPECIFIED HYPERTENSION AND CARDIAC MEDICATIONS [Concomitant]

REACTIONS (9)
  - Wound infection fungal [Recovering/Resolving]
  - Drug ineffective [Unknown]
  - Rash erythematous [Recovering/Resolving]
  - Insomnia [Recovered/Resolved]
  - Cardiovascular disorder [Unknown]
  - Arthralgia [Recovered/Resolved]
  - Off label use [Recovered/Resolved]
  - Application site infection [Recovering/Resolving]
  - Inappropriate schedule of drug administration [Recovered/Resolved]

NARRATIVE: CASE EVENT DATE: 2015
